FAERS Safety Report 23396673 (Version 1)
Quarter: 2024Q1

REPORT INFORMATION
  Report Type: Spontaneous
  Country: US (occurrence: None)
  Receive Date: 20240111
  Receipt Date: 20240111
  Transmission Date: 20240410
  Serious: Yes (Hospitalization)
  Sender: FDA-Public Use
  Company Number: None

PATIENT
  Age: 49 Year
  Sex: Male

DRUGS (1)
  1. LUPRON DEPOT [Suspect]
     Active Substance: LEUPROLIDE ACETATE
     Dosage: OTHER FREQUENCY : Q3M;?

REACTIONS (7)
  - Fatigue [None]
  - Bone pain [None]
  - Night sweats [None]
  - Hypoaesthesia [None]
  - Headache [None]
  - Chest pain [None]
  - Inflammation [None]
